FAERS Safety Report 16474762 (Version 1)
Quarter: 2019Q3

REPORT INFORMATION
  Report Type: Spontaneous
  Country: US (occurrence: US)
  Receive Date: 20190624
  Receipt Date: 20190624
  Transmission Date: 20191004
  Serious: Yes (Disabling)
  Sender: FDA-Public Use
  Company Number: None

PATIENT
  Age: 38 Year
  Sex: Male
  Weight: 99 kg

DRUGS (2)
  1. ROBAXIN [Suspect]
     Active Substance: METHOCARBAMOL
     Indication: MUSCLE SPASMS
     Dosage: ?          QUANTITY:1 TABLET(S);?
     Route: 048
  2. NSAID [Concomitant]
     Active Substance: UNSPECIFIED INGREDIENT

REACTIONS (9)
  - Gastrointestinal disorder [None]
  - Somnolence [None]
  - Inappropriate schedule of product administration [None]
  - Gastrointestinal haemorrhage [None]
  - Gastrointestinal tract irritation [None]
  - Tenderness [None]
  - Gastrointestinal pain [None]
  - Haematochezia [None]
  - Hallucination [None]

NARRATIVE: CASE EVENT DATE: 20190323
